FAERS Safety Report 7416105-7 (Version None)
Quarter: 2011Q2

REPORT INFORMATION
  Report Type: 
  Country: None (occurrence: None)
  Receive Date: 20110414
  Receipt Date: 20110401
  Transmission Date: 20111010
  Serious: Yes (Other)
  Sender: FDA-Public Use
  Company Number: NO-ELI_LILLY_AND_COMPANY-NO201104001167

PATIENT
  Age: 66 Year
  Sex: Male

DRUGS (2)
  1. CYMBALTA [Suspect]
     Indication: DIABETIC NEUROPATHY
     Dosage: UNK, UNKNOWN
     Dates: start: 20100914
  2. NITROGLYCERIN [Concomitant]
     Indication: ANGINA PECTORIS
     Dosage: UNK, UNKNOWN

REACTIONS (4)
  - ANGINA PECTORIS [None]
  - WEIGHT DECREASED [None]
  - GLYCOSYLATED HAEMOGLOBIN DECREASED [None]
  - JOINT STIFFNESS [None]
